FAERS Safety Report 17044914 (Version 1)
Quarter: 2019Q4

REPORT INFORMATION
  Report Type: Spontaneous
  Country: FR (occurrence: FR)
  Receive Date: 20191118
  Receipt Date: 20191118
  Transmission Date: 20200122
  Serious: Yes (Hospitalization)
  Sender: FDA-Public Use
  Company Number: FR-ELI_LILLY_AND_COMPANY-14905251

PATIENT
  Age: 67 Year
  Sex: Male
  Weight: 58 kg

DRUGS (3)
  1. ELOXATIN [Suspect]
     Active Substance: OXALIPLATIN
     Indication: PANCREATIC CARCINOMA
     Dosage: 169.5 MG, QD
     Route: 042
     Dates: start: 20080917, end: 20080917
  2. CETUXIMAB. [Suspect]
     Active Substance: CETUXIMAB
     Indication: PANCREATIC CARCINOMA
     Dosage: 850 MG, QD
     Route: 042
     Dates: start: 20080917, end: 20080917
  3. FLUOROURACILE [Suspect]
     Active Substance: FLUOROURACIL
     Indication: PANCREATIC CARCINOMA
     Dosage: 5450 MG, UNKNOWN
     Route: 042
     Dates: start: 20080917

REACTIONS (1)
  - Disseminated intravascular coagulation [Unknown]

NARRATIVE: CASE EVENT DATE: 20080922
